FAERS Safety Report 22081373 (Version 1)
Quarter: 2023Q1

REPORT INFORMATION
  Report Type: Report from Study
  Country: CA (occurrence: CA)
  Receive Date: 20230309
  Receipt Date: 20230309
  Transmission Date: 20230418
  Serious: Yes (Hospitalization)
  Sender: FDA-Public Use
  Company Number: CA-BEH-2023156278

PATIENT
  Age: 71 Year
  Sex: Female
  Weight: 106.58 kg

DRUGS (10)
  1. HIZENTRA [Suspect]
     Active Substance: HUMAN IMMUNOGLOBULIN G
     Indication: Secondary immunodeficiency
     Dosage: 12 GRAM, QW
     Route: 065
     Dates: start: 20190123
  2. IMBRUVICA [Concomitant]
     Active Substance: IBRUTINIB
  3. CALCIUM [Concomitant]
     Active Substance: CALCIUM
  4. PANTOPRAZOLE [Concomitant]
     Active Substance: PANTOPRAZOLE
  5. BISOPROLOL [Concomitant]
     Active Substance: BISOPROLOL
  6. VIT D [VITAMIN D NOS] [Concomitant]
  7. ASPIRIN [Concomitant]
     Active Substance: ASPIRIN
  8. NITROGLYCERIN [Concomitant]
     Active Substance: NITROGLYCERIN
  9. ZOPICLONE [Concomitant]
     Active Substance: ZOPICLONE
  10. SOLIFENACIN [Concomitant]
     Active Substance: SOLIFENACIN

REACTIONS (2)
  - Pericarditis infective [Unknown]
  - Product quality issue [Unknown]
